FAERS Safety Report 15602009 (Version 16)
Quarter: 2020Q4

REPORT INFORMATION
  Report Type: Spontaneous
  Country: JP (occurrence: JP)
  Receive Date: 20181109
  Receipt Date: 20201105
  Transmission Date: 20210113
  Serious: Yes (Hospitalization, Other)
  Sender: FDA-Public Use
  Company Number: JP-AMGEN-JPNSP2018159523

PATIENT
  Age: 79 Year
  Sex: Female
  Weight: 57.6 kg

DRUGS (32)
  1. WARFARIN [WARFARIN SODIUM] [Suspect]
     Active Substance: WARFARIN SODIUM
     Indication: CEREBROVASCULAR ACCIDENT PROPHYLAXIS
     Dosage: 1.5 DOSAGE FORM, QD
     Route: 048
     Dates: start: 20180606
  2. RANITIDINE [RANITIDINE HYDROCHLORIDE] [Suspect]
     Active Substance: RANITIDINE
     Indication: THYROID FUNCTION TEST ABNORMAL
     Dosage: 150 MILLIGRAM, QD
     Route: 048
  3. PARSABIV [Suspect]
     Active Substance: ETELCALCETIDE HYDROCHLORIDE
     Dosage: 5 MILLIGRAM, 3 TIMES/WK
     Route: 010
     Dates: start: 20190115, end: 20190323
  4. PARSABIV [Suspect]
     Active Substance: ETELCALCETIDE HYDROCHLORIDE
     Dosage: 10 MILLIGRAM, 3 TIMES/WK
     Route: 010
     Dates: start: 20190326
  5. NESP [Concomitant]
     Active Substance: DARBEPOETIN ALFA
     Dosage: 30 MICROGRAM, QWK
     Route: 065
     Dates: start: 20190105, end: 20190119
  6. NESP [Concomitant]
     Active Substance: DARBEPOETIN ALFA
     Dosage: 5 MICROGRAM, QWK
     Route: 065
     Dates: start: 20190928, end: 20200201
  7. NESP [Concomitant]
     Active Substance: DARBEPOETIN ALFA
     Dosage: 15 MICROGRAM, QWK
     Route: 065
     Dates: start: 20200208, end: 20200404
  8. NESP [Concomitant]
     Active Substance: DARBEPOETIN ALFA
     Dosage: 10 MICROGRAM, QWK
     Route: 065
     Dates: start: 20200411
  9. AMLODIPINE [Concomitant]
     Active Substance: AMLODIPINE BESYLATE
     Indication: BLOOD PRESSURE MANAGEMENT
     Dosage: 5 MILLIGRAM, QD
     Route: 048
  10. NESP [Concomitant]
     Active Substance: DARBEPOETIN ALFA
     Dosage: 15 MICROGRAM, QWK
     Route: 065
     Dates: start: 20190126, end: 20190323
  11. NESP [Concomitant]
     Active Substance: DARBEPOETIN ALFA
     Dosage: 5 MICROGRAM, QWK
     Route: 065
     Dates: start: 20190413, end: 20190921
  12. OXAROL [Suspect]
     Active Substance: MAXACALCITOL
     Dosage: 2.5 MICROGRAM, 3 TIMES/WK
     Route: 042
     Dates: start: 20180607, end: 20190420
  13. OXAROL [Suspect]
     Active Substance: MAXACALCITOL
     Dosage: 5 MICROGRAM, QWK
     Route: 042
     Dates: start: 20200912
  14. NESP [Concomitant]
     Active Substance: DARBEPOETIN ALFA
     Dosage: 15 MICROGRAM, QWK
     Route: 065
     Dates: end: 20181020
  15. ALOSENN [ACHILLEA MILLEFOLIUM;RUBIA TINCTORUM ROOT TINCTURE;SENNA ALEX [Suspect]
     Active Substance: ACHILLEA MILLEFOLIUM\RUBIA TINCTURE\SENNA FRUIT EXTRACT\SENNA LEAF\TARAXACUM OFFICINALE
     Indication: CONSTIPATION
     Dosage: 2 DOSAGE FORM, QD
     Route: 048
  16. FOSRENOL [Suspect]
     Active Substance: LANTHANUM CARBONATE
     Dosage: 1000 MILLIGRAM, QD
     Route: 048
     Dates: start: 20200319
  17. FESIN [SACCHARATED IRON OXIDE] [Concomitant]
     Active Substance: IRON SUCROSE
     Dosage: 40 MILLIGRAM, QWK
     Route: 065
  18. PARSABIV [Suspect]
     Active Substance: ETELCALCETIDE HYDROCHLORIDE
     Indication: HYPERPARATHYROIDISM SECONDARY
     Dosage: 2.5 MILLIGRAM, 3 TIMES/WK
     Route: 010
     Dates: start: 20181023, end: 20190112
  19. OXAROL [Suspect]
     Active Substance: MAXACALCITOL
     Dosage: 10 MICROGRAM, 3 TIMES/WK
     Route: 042
     Dates: start: 20190528, end: 20190810
  20. OXAROL [Suspect]
     Active Substance: MAXACALCITOL
     Dosage: 10 MICROGRAM, QWK
     Route: 042
     Dates: start: 20200111, end: 20200328
  21. OXAROL [Suspect]
     Active Substance: MAXACALCITOL
     Dosage: 10 MICROGRAM, 2 TIMES/WK
     Route: 042
     Dates: start: 20200912
  22. REBAMIPIDE [Suspect]
     Active Substance: REBAMIPIDE
     Indication: GASTRITIS PROPHYLAXIS
     Dosage: 100 MILLIGRAM, 2 TIMES/WK
     Route: 048
  23. AZILVA [Concomitant]
     Active Substance: AZILSARTAN KAMEDOXOMIL
     Indication: BLOOD PRESSURE MANAGEMENT
     Dosage: 20 MILLIGRAM, QD
     Route: 048
  24. NESP [Concomitant]
     Active Substance: DARBEPOETIN ALFA
     Dosage: 40 MICROGRAM, QWK
     Route: 065
     Dates: start: 20181110, end: 20181229
  25. NESP [Concomitant]
     Active Substance: DARBEPOETIN ALFA
     Dosage: 10 MICROGRAM, QWK
     Route: 065
     Dates: start: 20190330, end: 20190406
  26. OXAROL [Suspect]
     Active Substance: MAXACALCITOL
     Indication: PRODUCT USED FOR UNKNOWN INDICATION
     Dosage: 5 MICROGRAM, 3 TIMES/WK
     Route: 042
     Dates: start: 20160112, end: 20180605
  27. OXAROL [Suspect]
     Active Substance: MAXACALCITOL
     Dosage: 5 MICROGRAM, 3 TIMES/WK
     Route: 042
     Dates: start: 20190423, end: 20190525
  28. OXAROL [Suspect]
     Active Substance: MAXACALCITOL
     Dosage: 5 MICROGRAM, 3 TIMES/WK
     Route: 042
     Dates: start: 20190813, end: 20200104
  29. OXAROL [Suspect]
     Active Substance: MAXACALCITOL
     Dosage: 5 MICROGRAM, 3 TIMES/WK
     Route: 042
     Dates: start: 20200331, end: 20200910
  30. FOSRENOL [Suspect]
     Active Substance: LANTHANUM CARBONATE
     Indication: BLOOD PHOSPHORUS INCREASED
     Dosage: 250 MILLIGRAM, 2 TIMES/WK
     Route: 048
     Dates: start: 20200318
  31. FOSRENOL [Suspect]
     Active Substance: LANTHANUM CARBONATE
     Dosage: 375 MILLIGRAM, QD
     Route: 048
     Dates: start: 20191010
  32. OXAROL [Suspect]
     Active Substance: MAXACALCITOL
     Dosage: 5 MICROGRAM, 2 TIMES/WK
     Route: 042
     Dates: start: 20200111, end: 20200328

REACTIONS (6)
  - Internal haemorrhage [Recovered/Resolved]
  - Vomiting [Recovered/Resolved]
  - Subcutaneous haematoma [Recovered/Resolved]
  - Fall [Unknown]
  - Cerebral circulatory failure [Recovered/Resolved]
  - Facial paralysis [Recovering/Resolving]

NARRATIVE: CASE EVENT DATE: 20181024
